FAERS Safety Report 22366691 (Version 3)
Quarter: 2023Q2

REPORT INFORMATION
  Report Type: Spontaneous
  Country: US (occurrence: US)
  Receive Date: 20230525
  Receipt Date: 20230616
  Transmission Date: 20230722
  Serious: Yes (Hospitalization, Other)
  Sender: FDA-Public Use
  Company Number: US-SA-2023SA155959

PATIENT
  Age: 58 Year
  Sex: Female

DRUGS (3)
  1. CEMIPLIMAB [Suspect]
     Active Substance: CEMIPLIMAB
     Indication: Basal cell carcinoma
     Dosage: UNK
  2. PREDNISONE [Suspect]
     Active Substance: PREDNISONE
     Indication: Hepatitis
     Dosage: 100 MG, QD
  3. PREDNISONE [Suspect]
     Active Substance: PREDNISONE
     Dosage: 40 MG, QD

REACTIONS (7)
  - Venoocclusive liver disease [Not Recovered/Not Resolved]
  - Ascites [Not Recovered/Not Resolved]
  - Nodular regenerative hyperplasia [Not Recovered/Not Resolved]
  - Portal hypertension [Not Recovered/Not Resolved]
  - Hepatic encephalopathy [Unknown]
  - Cytomegalovirus infection reactivation [Unknown]
  - Cytomegalovirus viraemia [Unknown]
